FAERS Safety Report 16439565 (Version 1)
Quarter: 2019Q2

REPORT INFORMATION
  Report Type: Spontaneous
  Country: US (occurrence: US)
  Receive Date: 20190617
  Receipt Date: 20190617
  Transmission Date: 20190711
  Serious: Yes (Hospitalization, Other)
  Sender: FDA-Public Use
  Company Number: US-ROCHE-2334135

PATIENT

DRUGS (2)
  1. AVASTIN [Suspect]
     Active Substance: BEVACIZUMAB
     Indication: RECTAL CANCER
     Route: 065
     Dates: start: 20181204, end: 20190604
  2. AVASTIN [Suspect]
     Active Substance: BEVACIZUMAB
     Route: 065
     Dates: start: 20190521

REACTIONS (13)
  - Proctalgia [Unknown]
  - Tremor [Unknown]
  - Malaise [Unknown]
  - Dyspnoea [Unknown]
  - Decreased activity [Unknown]
  - Abdominal pain [Unknown]
  - Intestinal perforation [Not Recovered/Not Resolved]
  - Asthenia [Unknown]
  - Nephrolithiasis [Unknown]
  - Chills [Unknown]
  - Urinary retention [Unknown]
  - Rectal haemorrhage [Unknown]
  - Fatigue [Unknown]

NARRATIVE: CASE EVENT DATE: 20190604
